FAERS Safety Report 25250307 (Version 2)
Quarter: 2025Q2

REPORT INFORMATION
  Report Type: Spontaneous
  Country: CL (occurrence: CL)
  Receive Date: 20250429
  Receipt Date: 20250529
  Transmission Date: 20250717
  Serious: No
  Sender: PFIZER
  Company Number: CL-PFIZER INC-202500089215

PATIENT
  Sex: Female

DRUGS (1)
  1. GENOTROPIN [Suspect]
     Active Substance: SOMATROPIN

REACTIONS (2)
  - Device information output issue [Unknown]
  - Drug dose omission by device [Unknown]

NARRATIVE: CASE EVENT DATE: 20250401
